FAERS Safety Report 15318579 (Version 1)
Quarter: 2018Q3

REPORT INFORMATION
  Report Type: Spontaneous
  Country: US (occurrence: US)
  Receive Date: 20180817
  Receipt Date: 20180817
  Transmission Date: 20181010
  Serious: Yes (Disabling)
  Sender: FDA-Public Use
  Company Number: None

PATIENT
  Sex: Female
  Weight: 54 kg

DRUGS (1)
  1. DIGOXIN. [Suspect]
     Active Substance: DIGOXIN
     Indication: ATRIAL FIBRILLATION
     Dosage: ?          QUANTITY:1 TABLET(S);?
     Route: 048
     Dates: start: 20180104, end: 20180428

REACTIONS (12)
  - Vision blurred [None]
  - Dysphagia [None]
  - Cardioactive drug level increased [None]
  - Swollen tongue [None]
  - Fatigue [None]
  - Dysarthria [None]
  - Weight decreased [None]
  - Dyspnoea [None]
  - Pruritus [None]
  - Drug monitoring procedure not performed [None]
  - Confusional state [None]
  - Dizziness [None]
